FAERS Safety Report 20157042 (Version 1)
Quarter: 2021Q4

REPORT INFORMATION
  Report Type: Spontaneous
  Country: US (occurrence: US)
  Receive Date: 20211207
  Receipt Date: 20211207
  Transmission Date: 20220304
  Serious: No
  Sender: FDA-Public Use
  Company Number: US-TAKEDA-2021TUS077706

PATIENT
  Sex: Male
  Weight: 78.005 kg

DRUGS (10)
  1. GATTEX [Suspect]
     Active Substance: TEDUGLUTIDE\WATER
     Indication: Short-bowel syndrome
     Dosage: 0.39 MILLILITER, QD
     Route: 065
  2. IMODIUM [Concomitant]
     Active Substance: LOPERAMIDE HYDROCHLORIDE
  3. INFLECTRA [Concomitant]
     Active Substance: INFLIXIMAB-DYYB
  4. OMEPRAZOLE [Concomitant]
     Active Substance: OMEPRAZOLE
  5. PREDNISONE [Concomitant]
     Active Substance: PREDNISONE
  6. EFFEXOR [Concomitant]
     Active Substance: VENLAFAXINE HYDROCHLORIDE
  7. VITAMIN D [Concomitant]
     Active Substance: VITAMIN D NOS
  8. LISINOPRIL [Concomitant]
     Active Substance: LISINOPRIL
  9. SODIUM CHLORIDE [Concomitant]
     Active Substance: SODIUM CHLORIDE
  10. LOMOTIL [Concomitant]
     Active Substance: ATROPINE SULFATE\DIPHENOXYLATE HYDROCHLORIDE

REACTIONS (2)
  - Abdominal pain [Unknown]
  - Dyspepsia [Unknown]
